FAERS Safety Report 8119023-4 (Version None)
Quarter: 2012Q1

REPORT INFORMATION
  Report Type: 
  Country: None (occurrence: None)
  Receive Date: 20120207
  Receipt Date: 20120125
  Transmission Date: 20120608
  Serious: Yes (Hospitalization)
  Sender: FDA-Public Use
  Company Number: CA-ROCHE-1033925

PATIENT
  Sex: Female
  Weight: 63.56 kg

DRUGS (14)
  1. LORAZEPAM [Concomitant]
  2. SULFATRIM [Concomitant]
  3. LASIX [Concomitant]
  4. PREDNISONE TAB [Concomitant]
  5. ACIDOPHILUS [Concomitant]
  6. RANITIDINE [Concomitant]
  7. LYRICA [Concomitant]
  8. NORTRIPTYLINE HCL [Concomitant]
  9. MELATONIN [Concomitant]
  10. POTASSIUM CHLORIDE [Concomitant]
  11. MABTHERA [Suspect]
     Indication: VASCULITIS
     Route: 042
     Dates: start: 20100209
  12. HYDROMORPHONE HCL [Concomitant]
  13. BACLOFEN [Concomitant]
  14. MULTI-VITAMINS [Concomitant]

REACTIONS (1)
  - PNEUMONIA ASPIRATION [None]
